FAERS Safety Report 16149615 (Version 3)
Quarter: 2019Q3

REPORT INFORMATION
  Report Type: Report from Study
  Country: ZA (occurrence: ZA)
  Receive Date: 20190402
  Receipt Date: 20190812
  Transmission Date: 20191004
  Serious: Yes (Death, Other)
  Sender: FDA-Public Use
  Company Number: ZA-REGENERON PHARMACEUTICALS, INC.-2019-23708

PATIENT

DRUGS (6)
  1. EYLEA [Suspect]
     Active Substance: AFLIBERCEPT
     Dosage: BILATERAL EYES
     Dates: start: 20180312, end: 20180312
  2. EYLEA [Suspect]
     Active Substance: AFLIBERCEPT
     Dosage: BILATERAL EYES
     Dates: start: 20180709, end: 20180709
  3. EYLEA [Suspect]
     Active Substance: AFLIBERCEPT
     Dosage: BILATERAL EYES
     Dates: start: 20180507, end: 20180507
  4. WARFARIN [Suspect]
     Active Substance: WARFARIN
     Indication: PRODUCT USED FOR UNKNOWN INDICATION
     Dosage: 7.5 MG
  5. EYLEA [Suspect]
     Active Substance: AFLIBERCEPT
     Indication: AGE-RELATED MACULAR DEGENERATION
     Dosage: BILATERAL EYES, TOTAL OF 5 EYLEA DOSES
     Dates: start: 20170911, end: 20170911
  6. EYLEA [Suspect]
     Active Substance: AFLIBERCEPT
     Dosage: BILATERAL EYES
     Dates: start: 20180514, end: 20180514

REACTIONS (4)
  - Haemorrhagic stroke [Unknown]
  - Asthenia [Unknown]
  - Cardiac failure [Fatal]
  - Haemorrhagic stroke [Unknown]

NARRATIVE: CASE EVENT DATE: 201712
